FAERS Safety Report 6005444-2 (Version None)
Quarter: 2008Q4

REPORT INFORMATION
  Report Type: 
  Country: None (occurrence: None)
  Receive Date: 20081217
  Receipt Date: 20081205
  Transmission Date: 20090506
  Serious: Yes (Death, Life-Threatening)
  Sender: FDA-Public Use
  Company Number: JP-WYE-H06527008

PATIENT
  Sex: Male

DRUGS (10)
  1. ANCARON [Suspect]
     Indication: VENTRICULAR TACHYCARDIA
     Route: 048
     Dates: start: 20080802, end: 20081028
  2. AMLODIN [Concomitant]
     Indication: HYPERTENSION
     Route: 048
     Dates: start: 20080728, end: 20081028
  3. LENDORMIN [Concomitant]
     Indication: INSOMNIA
     Route: 048
     Dates: start: 20080722, end: 20081028
  4. VASOLAN [Concomitant]
     Indication: TACHYARRHYTHMIA
     Dosage: UNSPECIFIED
     Route: 048
     Dates: start: 20080722, end: 20080812
  5. ASPIRIN [Concomitant]
     Indication: MYOCARDIAL INFARCTION
     Route: 048
     Dates: start: 20080820, end: 20081028
  6. SODIUM BICARBONATE [Concomitant]
     Indication: METABOLIC ACIDOSIS
     Dates: start: 20081008, end: 20081028
  7. ZYLORIC [Concomitant]
     Indication: HYPERURICAEMIA
     Route: 048
     Dates: start: 20081017, end: 20081028
  8. MUCODYNE [Concomitant]
     Route: 048
     Dates: start: 20080724, end: 20081028
  9. TAKEPRON [Concomitant]
     Route: 048
     Dates: start: 20080722, end: 20081028
  10. FUROSEMIDE [Concomitant]
     Indication: MYOCARDIAL INFARCTION
     Route: 048
     Dates: start: 20080722, end: 20081028

REACTIONS (1)
  - INTERSTITIAL LUNG DISEASE [None]
